FAERS Safety Report 9655978 (Version 1)
Quarter: 2013Q4

REPORT INFORMATION
  Report Type: Spontaneous
  Country: US (occurrence: US)
  Receive Date: 20131030
  Receipt Date: 20131030
  Transmission Date: 20140711
  Serious: Yes (Disabling, Other)
  Sender: FDA-Public Use
  Company Number: US-BAYER-2013-129763

PATIENT
  Age: 75 Year
  Sex: Female

DRUGS (1)
  1. AVELOX [Suspect]
     Indication: UPPER RESPIRATORY TRACT INFECTION
     Dosage: UNK
     Route: 048
     Dates: start: 20100105, end: 20100114

REACTIONS (20)
  - Visual impairment [None]
  - Uveitis [None]
  - Glaucoma [None]
  - Anterior chamber inflammation [None]
  - Iridocyclitis [None]
  - Vitreous injury [None]
  - Pigment dispersion syndrome [None]
  - Iris hypopigmentation [None]
  - Iris transillumination defect [None]
  - Eye swelling [None]
  - Iris disorder [None]
  - Deposit eye [None]
  - Intraocular pressure test abnormal [None]
  - Photophobia [None]
  - Pain [None]
  - Emotional distress [None]
  - Anhedonia [None]
  - Injury [None]
  - Dry eye [None]
  - Quality of life decreased [None]
